FAERS Safety Report 4965210-3 (Version None)
Quarter: 2006Q1

REPORT INFORMATION
  Report Type: 
  Country: None (occurrence: None)
  Receive Date: 20060201
  Receipt Date: 20051208
  Transmission Date: 20060701
  Serious: No
  Sender: FDA-Public Use
  Company Number: FACT0500716

PATIENT
  Age: 42 Year
  Sex: Female
  Weight: 78 kg

DRUGS (7)
  1. FACTIVE [Suspect]
     Indication: RESPIRATORY TRACT INFECTION BACTERIAL
     Dosage: 320 MG, QD, ORAL
     Route: 048
     Dates: start: 20051207, end: 20051207
  2. PREDNISONE [Suspect]
     Indication: BRONCHITIS ACUTE
     Dosage: 20 MG, QD, ORAL
     Route: 048
     Dates: start: 20051207
  3. XANAX [Concomitant]
  4. ADVAIR DISKUS 100/50 [Concomitant]
  5. XOPENEX [Concomitant]
  6. PROTONIX [Concomitant]
  7. SPIRIVA [Concomitant]

REACTIONS (3)
  - HYPERHIDROSIS [None]
  - NAUSEA [None]
  - VOMITING [None]
